FAERS Safety Report 7631060-2 (Version None)
Quarter: 2011Q3

REPORT INFORMATION
  Report Type: 
  Country: None (occurrence: None)
  Receive Date: 20110714
  Receipt Date: 20110625
  Transmission Date: 20111222
  Serious: Yes (Life-Threatening, Hospitalization)
  Sender: FDA-Public Use
  Company Number: 2010SP037411

PATIENT
  Age: 32 Year
  Sex: Male
  Weight: 76 kg

DRUGS (11)
  1. VOLTAREN [Concomitant]
  2. LANSOPRAZOLE [Concomitant]
  3. PEG-INTRON [Suspect]
     Indication: HEPATITIS C
     Dosage: SEE IMAGE
     Route: 058
     Dates: start: 20100623, end: 20100623
  4. PEG-INTRON [Suspect]
     Indication: HEPATITIS C
     Dosage: SEE IMAGE
     Route: 058
     Dates: start: 20100701, end: 20100701
  5. PEG-INTRON [Suspect]
     Indication: HEPATITIS C
     Dosage: SEE IMAGE
     Route: 058
     Dates: start: 20100602, end: 20100614
  6. HALCION [Concomitant]
  7. GASLON N [Concomitant]
  8. CLARITIN [Concomitant]
  9. REBETOL [Suspect]
     Indication: HEPATITIS C
     Dosage: 400 MG;BID;PO 200 MG;BID;PO
     Route: 048
     Dates: start: 20100602, end: 20100607
  10. REBETOL [Suspect]
     Indication: HEPATITIS C
     Dosage: 400 MG;BID;PO 200 MG;BID;PO
     Route: 048
     Dates: start: 20100609, end: 20100707
  11. RIZE [Concomitant]

REACTIONS (1)
  - THROMBOTIC THROMBOCYTOPENIC PURPURA [None]
